FAERS Safety Report 8119927-2 (Version None)
Quarter: 2012Q1

REPORT INFORMATION
  Report Type: 
  Country: None (occurrence: None)
  Receive Date: 20120203
  Receipt Date: 20120120
  Transmission Date: 20120608
  Serious: Yes (Hospitalization)
  Sender: FDA-Public Use
  Company Number: JPI-P-019434

PATIENT
  Age: 61 Year
  Sex: Male
  Weight: 92.9874 kg

DRUGS (14)
  1. XYREM [Suspect]
     Indication: CATAPLEXY
     Dosage: 5 GM (2.5 GM, 2 IN 1 D), ORAL, UNKNOWN
     Route: 048
     Dates: start: 20111028
  2. XYREM [Suspect]
     Indication: SLEEP APNOEA SYNDROME
     Dosage: 5 GM (2.5 GM, 2 IN 1 D), ORAL, UNKNOWN
     Route: 048
     Dates: start: 20111028
  3. GABAPENTIN [Suspect]
     Indication: NEURALGIA
     Dosage: 600 MG (600 MG, 1 IN 1 D)
     Dates: start: 20111201
  4. SIMVASTATIN [Concomitant]
  5. PANTOPRAZOLE SODIUM [Concomitant]
  6. XYREM [Suspect]
     Dosage: 9 GM (4.5 GM, 2 IN 1 D), ORAL
     Route: 048
     Dates: end: 20120116
  7. KETAMINE HCL [Suspect]
     Indication: PAIN
     Dosage: (1.2 ML), INJECTION
     Dates: start: 20110601
  8. KETAMINE HCL [Suspect]
     Indication: RESTLESS LEGS SYNDROME
     Dosage: (1.2 ML), INJECTION
     Dates: start: 20110601
  9. LISINOPRIL [Concomitant]
  10. CLONAZEPAM [Concomitant]
  11. TAPENTADOL HYDROCHLORIDE [Suspect]
     Indication: BACK PAIN
  12. TAPENTADOL HYDROCHLORIDE [Suspect]
     Indication: SPINAL COLUMN STENOSIS
  13. HYDROCODONE BITARTRATE AND ACETAMINOPHEN [Suspect]
     Indication: BACK PAIN
     Dosage: 750 MG, ORAL
     Route: 048
     Dates: start: 20120101
  14. HYDROCODONE BITARTRATE AND ACETAMINOPHEN [Suspect]
     Indication: SPINAL COLUMN STENOSIS
     Dosage: 750 MG, ORAL
     Route: 048
     Dates: start: 20120101

REACTIONS (4)
  - PROCEDURAL PAIN [None]
  - NEURALGIA [None]
  - INSOMNIA [None]
  - BACK PAIN [None]
